FAERS Safety Report 6444046-0 (Version None)
Quarter: 2009Q4

REPORT INFORMATION
  Report Type: 
  Country: None (occurrence: None)
  Receive Date: 20091118
  Receipt Date: 20091110
  Transmission Date: 20100525
  Serious: Yes (Hospitalization)
  Sender: FDA-Public Use
  Company Number: US-BIOGENIDEC-2009BI014309

PATIENT
  Age: 69 Year
  Sex: Female

DRUGS (30)
  1. TYSABRI [Suspect]
     Indication: MULTIPLE SCLEROSIS
     Route: 042
     Dates: start: 20061115, end: 20090302
  2. TYSABRI [Suspect]
     Route: 042
     Dates: start: 20090801
  3. AMBIEN [Concomitant]
     Route: 048
  4. ASPIRIN [Concomitant]
     Route: 048
  5. CALCIUM WITH VITAMIN D [Concomitant]
     Route: 048
  6. CARAFATE [Concomitant]
     Route: 048
  7. COLACE [Concomitant]
     Route: 048
  8. DIAZEPAM [Concomitant]
     Route: 048
  9. K-DUR [Concomitant]
     Route: 048
  10. LEXAPRO [Concomitant]
     Route: 048
  11. LORCET-HD [Concomitant]
     Route: 048
  12. MAGNESIUM [Concomitant]
     Route: 048
  13. MIRALAX [Concomitant]
     Route: 048
  14. MIRAPEX [Concomitant]
     Route: 048
  15. M.V.I. [Concomitant]
     Route: 048
  16. NAMENDA [Concomitant]
     Route: 048
  17. NUVIGIL [Concomitant]
     Route: 048
  18. OXYCONTIN [Concomitant]
     Route: 048
  19. OXYGEN [Concomitant]
  20. PREMARIN [Concomitant]
     Route: 048
  21. PROMETRIUM [Concomitant]
     Route: 048
  22. PROTONIX [Concomitant]
     Route: 048
  23. REGLAN [Concomitant]
     Route: 048
  24. RYTHMOL [Concomitant]
     Route: 048
  25. SOMA [Concomitant]
     Route: 048
  26. SPIRIVA [Concomitant]
     Route: 055
  27. SPIRONOLACTONE [Concomitant]
     Route: 048
  28. STRATTERA [Concomitant]
     Route: 048
  29. SYNTHROID [Concomitant]
     Route: 048
  30. TORSEMIDE [Concomitant]
     Route: 048

REACTIONS (9)
  - BRONCHITIS [None]
  - CELLULITIS [None]
  - FALL [None]
  - IMPAIRED HEALING [None]
  - MULTIPLE SCLEROSIS [None]
  - MULTIPLE SCLEROSIS RELAPSE [None]
  - PNEUMONIA STAPHYLOCOCCAL [None]
  - WOUND [None]
  - WOUND INFECTION STAPHYLOCOCCAL [None]
